FAERS Safety Report 25662815 (Version 2)
Quarter: 2025Q3

REPORT INFORMATION
  Report Type: Spontaneous
  Country: JP (occurrence: JP)
  Receive Date: 20250811
  Receipt Date: 20250922
  Transmission Date: 20251021
  Serious: Yes (Other)
  Sender: AMGEN
  Company Number: JP-KYOWAKIRIN-2025KK014106

PATIENT
  Age: 6 Decade
  Sex: Female

DRUGS (6)
  1. PEGFILGRASTIM [Suspect]
     Active Substance: PEGFILGRASTIM
     Indication: Colony stimulating factor therapy
     Route: 058
     Dates: start: 20240701, end: 20241201
  2. TRASTUZUMAB [Concomitant]
     Active Substance: TRASTUZUMAB
     Indication: Breast cancer female
     Route: 065
     Dates: start: 20240629
  3. TRASTUZUMAB [Concomitant]
     Active Substance: TRASTUZUMAB
     Route: 065
     Dates: end: 20241130
  4. PERTUZUMAB [Concomitant]
     Active Substance: PERTUZUMAB
     Indication: Breast cancer female
     Route: 041
     Dates: start: 20240629
  5. PERTUZUMAB [Concomitant]
     Active Substance: PERTUZUMAB
     Route: 041
     Dates: end: 20241130
  6. DOCETAXEL [Concomitant]
     Active Substance: DOCETAXEL
     Indication: Breast cancer female
     Route: 065
     Dates: start: 20240629, end: 20241130

REACTIONS (2)
  - Aortitis [Recovered/Resolved]
  - Vascular device infection [Unknown]

NARRATIVE: CASE EVENT DATE: 20240710
